FAERS Safety Report 5526937-8 (Version None)
Quarter: 2007Q4

REPORT INFORMATION
  Report Type: 
  Country: None (occurrence: None)
  Receive Date: 20071127
  Receipt Date: 20071115
  Transmission Date: 20080405
  Serious: Yes (Other)
  Sender: FDA-Public Use
  Company Number: US-SANOFI-SYNTHELABO-A03200706596

PATIENT
  Age: 49 Year
  Sex: Female

DRUGS (7)
  1. AMBIEN [Suspect]
     Route: 048
  2. ASPIRIN [Concomitant]
     Dosage: UNK
     Route: 048
  3. NADOLOL [Concomitant]
     Dosage: UNK
     Route: 048
  4. LEVOTHYROXINE SODIUM [Concomitant]
     Dosage: UNK
     Route: 048
  5. LAMOTRIGINE [Concomitant]
     Dosage: UNK
     Route: 048
  6. PAROXETINE [Concomitant]
     Dosage: UNK
     Route: 048
  7. TRAZODONE HCL [Concomitant]
     Dosage: UNK
     Route: 048

REACTIONS (6)
  - AMNESIA [None]
  - EATING DISORDER [None]
  - SLEEP APNOEA SYNDROME [None]
  - SNORING [None]
  - SOMNAMBULISM [None]
  - WEIGHT INCREASED [None]
